FAERS Safety Report 20306005 (Version 1)
Quarter: 2022Q1

REPORT INFORMATION
  Report Type: Spontaneous
  Country: US (occurrence: US)
  Receive Date: 20220106
  Receipt Date: 20220106
  Transmission Date: 20220423
  Serious: No
  Sender: FDA-Public Use
  Company Number: US-KYOWAKIRIN-2021BKK022057

PATIENT

DRUGS (4)
  1. CRYSVITA [Suspect]
     Active Substance: BUROSUMAB-TWZA
     Indication: Hereditary hypophosphataemic rickets
     Dosage: STRENGTH OF 20MG AND 30MG COMBINED TO ACHIEVE 80MG, EVERY 28 DAYS
     Route: 058
     Dates: start: 20180620
  2. CRYSVITA [Suspect]
     Active Substance: BUROSUMAB-TWZA
     Dosage: STRENGTH OF 20MG AND 30MG COMBINED TO ACHIEVE 80MG, EVERY 28 DAYS
     Route: 058
     Dates: start: 20211217
  3. CRYSVITA [Suspect]
     Active Substance: BUROSUMAB-TWZA
     Indication: Hereditary hypophosphataemic rickets
     Dosage: STRENGTH OF 20MG AND 30MG COMBINED TO ACHIEVE 80MG, EVERY 28 DAYS
     Route: 058
     Dates: start: 20180620
  4. CRYSVITA [Suspect]
     Active Substance: BUROSUMAB-TWZA
     Dosage: STRENGTH OF 20MG AND 30MG COMBINED TO ACHIEVE 80MG, EVERY 28 DAYS
     Route: 058
     Dates: start: 20211217

REACTIONS (1)
  - Inappropriate schedule of product administration [Recovered/Resolved]

NARRATIVE: CASE EVENT DATE: 20211201
